FAERS Safety Report 20682708 (Version 1)
Quarter: 2022Q2

REPORT INFORMATION
  Report Type: Other
  Country: CA (occurrence: None)
  Receive Date: 20220407
  Receipt Date: 20220407
  Transmission Date: 20220721
  Serious: Yes (Other)
  Sender: FDA-Public Use
  Company Number: CA-ROCHE-2935940

PATIENT
  Age: 37 Year
  Sex: Female

DRUGS (9)
  1. RITUXAN [Suspect]
     Active Substance: RITUXIMAB
     Indication: Neuromyelitis optica spectrum disorder
     Dosage: ONGOING
     Route: 042
     Dates: start: 20170403
  2. RITUXAN [Suspect]
     Active Substance: RITUXIMAB
     Route: 042
     Dates: start: 201212
  3. BENADRYL [Concomitant]
     Active Substance: DIPHENHYDRAMINE HYDROCHLORIDE
     Indication: Premedication
     Route: 048
     Dates: start: 20170403
  4. DESELEX [Concomitant]
  5. OXYBUTYNIN [Concomitant]
     Active Substance: OXYBUTYNIN
  6. PANTOPRAZOLE SODIUM [Concomitant]
     Active Substance: PANTOPRAZOLE SODIUM
  7. SOLU-MEDROL [Concomitant]
     Active Substance: METHYLPREDNISOLONE SODIUM SUCCINATE
     Indication: Premedication
     Route: 042
     Dates: start: 20170403
  8. TYLENOL [Concomitant]
     Active Substance: ACETAMINOPHEN
     Indication: Premedication
     Route: 048
     Dates: start: 20170403
  9. ZINC [Concomitant]
     Active Substance: ZINC

REACTIONS (7)
  - SARS-CoV-2 test positive [Recovering/Resolving]
  - Pneumonia [Unknown]
  - Hypotension [Unknown]
  - Blood pressure decreased [Unknown]
  - Blood pressure diastolic abnormal [Unknown]
  - Hypogammaglobulinaemia [Unknown]
  - Lung disorder [Unknown]

NARRATIVE: CASE EVENT DATE: 20210917
